FAERS Safety Report 7504196-4 (Version None)
Quarter: 2011Q2

REPORT INFORMATION
  Report Type: 
  Country: None (occurrence: None)
  Receive Date: 20110525
  Receipt Date: 20090930
  Transmission Date: 20111010
  Serious: Yes (Death, Other)
  Sender: FDA-Public Use
  Company Number: US-BAYER-200934384NA

PATIENT
  Age: 71 Year
  Sex: Female
  Weight: 79 kg

DRUGS (16)
  1. HEPARIN [Concomitant]
     Dosage: 18,500 UNITS
     Route: 042
     Dates: start: 20080104, end: 20080104
  2. ACTOS [Concomitant]
  3. TRASYLOL [Suspect]
     Indication: CORONARY ARTERY BYPASS
     Dosage: 200 ML  CARDIOPULMONARY BYPASS
     Route: 050
     Dates: start: 20080104, end: 20080104
  4. TRASYLOL [Suspect]
     Indication: ENDARTERECTOMY
  5. QUINAPRIL [Concomitant]
     Dosage: UNK
  6. CLONIDINE [Concomitant]
  7. LASIX [Concomitant]
     Dosage: 40 MG
     Route: 048
     Dates: start: 20040104, end: 20040104
  8. NITROGLYCERIN [Concomitant]
     Dosage: TITRATE
     Route: 041
     Dates: start: 20080104, end: 20080104
  9. ACETYLSALICYLIC ACID SRT [Concomitant]
  10. MOBIC [Concomitant]
     Dosage: UNK
  11. ANCEF [Concomitant]
     Dosage: 2 GM
     Route: 042
     Dates: start: 20040104, end: 20040104
  12. LIDOCAINE [Concomitant]
     Dosage: UNK
     Route: 042
     Dates: start: 20080104, end: 20080104
  13. PHENYLEPHRINE HCL [Concomitant]
     Dosage: TITRATED
     Route: 041
     Dates: start: 20080104, end: 20080104
  14. PROTAMINE SULFATE [Concomitant]
     Dosage: 250 MG
     Route: 042
     Dates: start: 20080104, end: 20080104
  15. NIFEDIPINE [Concomitant]
  16. LIPITOR [Concomitant]

REACTIONS (27)
  - ANXIETY [None]
  - FEAR [None]
  - CEREBROVASCULAR ACCIDENT [None]
  - EMOTIONAL DISTRESS [None]
  - UNEVALUABLE EVENT [None]
  - CARDIOGENIC SHOCK [None]
  - FAT EMBOLISM [None]
  - HEPARIN-INDUCED THROMBOCYTOPENIA [None]
  - ANHEDONIA [None]
  - INJURY [None]
  - PAIN [None]
  - CARDIOPULMONARY FAILURE [None]
  - SEPSIS [None]
  - DEATH [None]
  - NERVOUSNESS [None]
  - DISABILITY [None]
  - METABOLIC DISORDER [None]
  - COAGULOPATHY [None]
  - TUBULOINTERSTITIAL NEPHRITIS [None]
  - POSTOPERATIVE WOUND INFECTION [None]
  - MULTI-ORGAN FAILURE [None]
  - LEUKOCYTOSIS [None]
  - RENAL INJURY [None]
  - RENAL FAILURE [None]
  - DEPRESSION [None]
  - PANCREATITIS [None]
  - RENAL TUBULAR NECROSIS [None]
